FAERS Safety Report 4781778-4 (Version None)
Quarter: 2005Q3

REPORT INFORMATION
  Report Type: 
  Country: None (occurrence: None)
  Receive Date: 20050927
  Receipt Date: 20050908
  Transmission Date: 20060218
  Serious: Yes (Hospitalization)
  Sender: FDA-Public Use
  Company Number: USA0509107558

PATIENT
  Age: 71 Year
  Sex: Female

DRUGS (1)
  1. HUMALOG [Suspect]
     Dates: start: 19950101

REACTIONS (5)
  - BLOOD GLUCOSE INCREASED [None]
  - DEHYDRATION [None]
  - INFECTION [None]
  - PHARMACEUTICAL PRODUCT COMPLAINT [None]
  - RENAL FAILURE [None]
